FAERS Safety Report 8568554-1 (Version None)
Quarter: 2012Q3

REPORT INFORMATION
  Report Type: 
  Country: None (occurrence: None)
  Receive Date: 20120803
  Receipt Date: 20120208
  Transmission Date: 20120928
  Serious: No
  Sender: FDA-Public Use
  Company Number: US-ABBOTT-12P-163-0902614-00

PATIENT
  Sex: Female
  Weight: 55.842 kg

DRUGS (4)
  1. NEXIUM [Concomitant]
     Indication: PRODUCT USED FOR UNKNOWN INDICATION
  2. FLEXERIL [Concomitant]
     Indication: MUSCLE SPASMS
  3. NIASPAN [Suspect]
     Indication: LOW DENSITY LIPOPROTEIN INCREASED
     Dosage: AT BEDTIME
     Dates: start: 20120118
  4. ASPIRIN [Concomitant]
     Indication: PRODUCT USED FOR UNKNOWN INDICATION
     Dates: end: 20120101

REACTIONS (5)
  - FORMICATION [None]
  - PERIPHERAL COLDNESS [None]
  - PARAESTHESIA [None]
  - ABDOMINAL DISCOMFORT [None]
  - RESTLESS LEGS SYNDROME [None]
